FAERS Safety Report 5475101-X (Version None)
Quarter: 2007Q4

REPORT INFORMATION
  Report Type: 
  Country: None (occurrence: None)
  Receive Date: 20071002
  Receipt Date: 20070920
  Transmission Date: 20080405
  Serious: Yes (Other)
  Sender: FDA-Public Use
  Company Number: US-PFIZER INC-2007060997

PATIENT
  Age: 63 Year
  Sex: Female
  Weight: 74.8 kg

DRUGS (3)
  1. CHANTIX [Suspect]
     Indication: SMOKING CESSATION THERAPY
  2. ASCORBIC ACID [Concomitant]
  3. CALCIUM [Concomitant]

REACTIONS (2)
  - SENSORY LOSS [None]
  - STEVENS-JOHNSON SYNDROME [None]
